FAERS Safety Report 6464412-7 (Version None)
Quarter: 2009Q4

REPORT INFORMATION
  Report Type: 
  Country: None (occurrence: None)
  Receive Date: 20091124
  Receipt Date: 20091111
  Transmission Date: 20100525
  Serious: Yes (Death)
  Sender: FDA-Public Use
  Company Number: A-US2003-02834

PATIENT
  Age: 62 Year
  Sex: Female

DRUGS (13)
  1. TRACLEER [Suspect]
     Indication: PULMONARY ARTERIAL HYPERTENSION
     Dosage: 125 MG, BID, ORAL; 62.5 MG, BID, ORAL
     Route: 048
     Dates: start: 20020805, end: 20021111
  2. TRACLEER [Suspect]
     Indication: PULMONARY ARTERIAL HYPERTENSION
     Dosage: 125 MG, BID, ORAL; 62.5 MG, BID, ORAL
     Route: 048
     Dates: start: 20021112, end: 20090926
  3. ROXICET [Concomitant]
  4. METOLAZONE [Concomitant]
  5. POTASSIUM (POTASSIUM) [Concomitant]
  6. NEXIUM [Concomitant]
  7. FUROSEMIDE [Concomitant]
  8. AMARYL [Concomitant]
  9. SPIRONOLACTONE [Concomitant]
  10. LACTULOSE [Concomitant]
  11. NEOMYCIN (NEOMYCIN) [Concomitant]
  12. XIFAXAN (RIFAXIMIN) [Concomitant]
  13. FERROUS SULFATE TAB [Concomitant]

REACTIONS (5)
  - ALANINE AMINOTRANSFERASE INCREASED [None]
  - ASPARTATE AMINOTRANSFERASE INCREASED [None]
  - BLOOD ALKALINE PHOSPHATASE INCREASED [None]
  - HEPATIC NEOPLASM MALIGNANT [None]
  - URTICARIA [None]
